FAERS Safety Report 11393546 (Version 1)
Quarter: 2015Q3

REPORT INFORMATION
  Report Type: Report from Study
  Country: US (occurrence: US)
  Receive Date: 20150818
  Receipt Date: 20150818
  Transmission Date: 20151125
  Serious: No
  Sender: FDA-Public Use
  Company Number: PHEH2015US005257

PATIENT
  Age: 67 Year
  Sex: Female
  Weight: 58.96 kg

DRUGS (1)
  1. GILENYA [Suspect]
     Active Substance: FINGOLIMOD HYDROCHLORIDE
     Indication: MULTIPLE SCLEROSIS
     Dosage: 0.5 MG, QD
     Route: 048
     Dates: start: 20150316

REACTIONS (10)
  - Dyspnoea [Unknown]
  - Sluggishness [Unknown]
  - Dizziness [Unknown]
  - Cough [Unknown]
  - Haemoptysis [Unknown]
  - Malaise [Unknown]
  - Heart rate decreased [Unknown]
  - Hunger [Unknown]
  - Weight increased [Unknown]
  - Wheezing [Unknown]

NARRATIVE: CASE EVENT DATE: 20150316
